FAERS Safety Report 14556225 (Version 1)
Quarter: 2018Q1

REPORT INFORMATION
  Report Type: Spontaneous
  Country: FR (occurrence: FR)
  Receive Date: 20180221
  Receipt Date: 20180221
  Transmission Date: 20180509
  Serious: Yes (Other)
  Sender: FDA-Public Use
  Company Number: FR-009507513-1801FRA010969

PATIENT
  Age: 76 Year
  Sex: Male

DRUGS (3)
  1. JANUVIA [Suspect]
     Active Substance: SITAGLIPTIN PHOSPHATE
     Indication: TYPE 2 DIABETES MELLITUS
     Dosage: 100MG, 1 TABLET, ONCE A DAY
     Route: 048
     Dates: end: 20180112
  2. STAGID [Suspect]
     Active Substance: METFORMIN PAMOATE
     Indication: TYPE 2 DIABETES MELLITUS
  3. DIAMICRON [Suspect]
     Active Substance: GLICLAZIDE
     Indication: TYPE 2 DIABETES MELLITUS

REACTIONS (6)
  - Lipase abnormal [Unknown]
  - Blood bilirubin increased [Unknown]
  - Drug ineffective [Unknown]
  - Drug intolerance [Unknown]
  - Faeces discoloured [Unknown]
  - Pancreatitis [Unknown]
